FAERS Safety Report 8879063 (Version 1)
Quarter: 2012Q4

REPORT INFORMATION
  Report Type: Spontaneous
  Country: US (occurrence: None)
  Receive Date: 20121031
  Receipt Date: 20121031
  Transmission Date: 20130627
  Serious: No
  Sender: FDA-Public Use
  Company Number: None

PATIENT
  Age: 57 Year
  Sex: Male

DRUGS (1)
  1. METHYLPREDNISOLONE [Suspect]
     Dosage: tapering 6-5-4-3-2-1 daily dosing po
     Route: 048
     Dates: start: 20120922, end: 20120928

REACTIONS (2)
  - Confusional state [None]
  - Incorrect dose administered [None]
